FAERS Safety Report 4822340-4 (Version None)
Quarter: 2005Q4

REPORT INFORMATION
  Report Type: 
  Country: None (occurrence: None)
  Receive Date: 20051103
  Receipt Date: 20051014
  Transmission Date: 20060501
  Serious: Yes (Other)
  Sender: FDA-Public Use
  Company Number: USA0510110945

PATIENT
  Age: 62 Year
  Sex: Male

DRUGS (1)
  1. HUMULIN L [Suspect]
     Dates: start: 19980101

REACTIONS (2)
  - MYOCARDIAL INFARCTION [None]
  - PROSTATE CANCER [None]
